FAERS Safety Report 24290649 (Version 1)
Quarter: 2024Q3

REPORT INFORMATION
  Report Type: Spontaneous
  Country: US (occurrence: None)
  Receive Date: 20240905
  Receipt Date: 20240905
  Transmission Date: 20241016
  Serious: Yes (Hospitalization)
  Sender: Public
  Company Number: None

PATIENT
  Sex: Female

DRUGS (3)
  1. HUMIRA [Suspect]
     Active Substance: ADALIMUMAB
     Indication: Crohn^s disease
     Dosage: OTHER QUANTITY : 1 SYRINGE (20MG);?FREQUENCY : EVERY OTHER WEEK;?
     Route: 058
     Dates: start: 20240621
  2. KP VITAMIN D [Concomitant]
  3. RASUVO [Concomitant]
     Active Substance: METHOTREXATE SODIUM

REACTIONS (6)
  - Weight abnormal [None]
  - Abdominal pain [None]
  - Quality of life decreased [None]
  - Rash [None]
  - Skin irritation [None]
  - Fatigue [None]
